FAERS Safety Report 6237793-7 (Version None)
Quarter: 2009Q2

REPORT INFORMATION
  Report Type: 
  Country: None (occurrence: None)
  Receive Date: 20090617
  Receipt Date: 20090612
  Transmission Date: 20091009
  Serious: Yes (Death, Life-Threatening, Hospitalization, Other)
  Sender: FDA-Public Use
  Company Number: 2009-01042

PATIENT
  Sex: Female

DRUGS (1)
  1. VELCADE [Suspect]
     Indication: MULTIPLE MYELOMA
     Dosage: 2 MG, INTRAVENOUS; 3.5 MG, INTRAVENOUS
     Route: 042
     Dates: start: 20081223, end: 20090306

REACTIONS (5)
  - CENTRAL NERVOUS SYSTEM INFECTION [None]
  - LUNG INFECTION [None]
  - NEURITIS [None]
  - PARAPLEGIA [None]
  - SEPTIC SHOCK [None]
